FAERS Safety Report 7457256-0 (Version None)
Quarter: 2011Q2

REPORT INFORMATION
  Report Type: 
  Country: None (occurrence: None)
  Receive Date: 20110502
  Receipt Date: 20110502
  Transmission Date: 20111010
  Serious: No
  Sender: FDA-Public Use
  Company Number: None

PATIENT
  Age: 80 Year
  Sex: Female
  Weight: 64.4108 kg

DRUGS (1)
  1. UNISOM [Suspect]
     Indication: SLEEP DISORDER THERAPY
     Dosage: 1
     Dates: start: 20110405

REACTIONS (2)
  - VERTIGO [None]
  - GAIT DISTURBANCE [None]
